FAERS Safety Report 22639116 (Version 1)
Quarter: 2023Q2

REPORT INFORMATION
  Report Type: Spontaneous
  Country: JP (occurrence: JP)
  Receive Date: 20230626
  Receipt Date: 20230626
  Transmission Date: 20230722
  Serious: Yes (Other)
  Sender: FDA-Public Use
  Company Number: JP-MTPC-MTPC2023-0016224

PATIENT
  Age: 6 Decade
  Sex: Male

DRUGS (1)
  1. REMICADE [Suspect]
     Active Substance: INFLIXIMAB
     Indication: Crohn^s disease
     Route: 041

REACTIONS (5)
  - Lymphoproliferative disorder [Unknown]
  - Anal fistula [Unknown]
  - Haemorrhoids [Recovered/Resolved]
  - Intestinal obstruction [Recovered/Resolved]
  - Proctalgia [Recovered/Resolved]
